FAERS Safety Report 24910827 (Version 1)
Quarter: 2025Q1

REPORT INFORMATION
  Report Type: Report from Study
  Country: BR (occurrence: BR)
  Receive Date: 20250131
  Receipt Date: 20250131
  Transmission Date: 20250408
  Serious: Yes (Hospitalization)
  Sender: NOVARTIS
  Company Number: BR-002147023-NVSC2025BR015642

PATIENT
  Sex: Male

DRUGS (1)
  1. ENTRESTO [Suspect]
     Active Substance: SACUBITRIL\VALSARTAN
     Indication: Product used for unknown indication
     Dosage: 1 DOSAGE FORM, BID
     Route: 065

REACTIONS (4)
  - Blood pressure decreased [Unknown]
  - Drug ineffective [Unknown]
  - Malaise [Unknown]
  - Blood test abnormal [Unknown]
